FAERS Safety Report 7261263-0 (Version None)
Quarter: 2011Q1

REPORT INFORMATION
  Report Type: 
  Country: None (occurrence: None)
  Receive Date: 20110130
  Receipt Date: 20100921
  Transmission Date: 20110831
  Serious: Yes (Hospitalization)
  Sender: FDA-Public Use
  Company Number: US-ABBOTT-10P-163-0672160-00

PATIENT
  Sex: Female

DRUGS (5)
  1. HUMIRA [Suspect]
     Indication: RHEUMATOID ARTHRITIS
     Dates: start: 20050101, end: 20100901
  2. PREDNISONE [Concomitant]
     Indication: PRODUCT USED FOR UNKNOWN INDICATION
  3. FOLIC ACID [Concomitant]
     Indication: PRODUCT USED FOR UNKNOWN INDICATION
  4. DARVOCET-N 100 [Concomitant]
     Indication: PRODUCT USED FOR UNKNOWN INDICATION
  5. METHOTREXATE [Concomitant]
     Indication: PRODUCT USED FOR UNKNOWN INDICATION

REACTIONS (10)
  - DIVERTICULITIS [None]
  - STAPHYLOCOCCAL INFECTION [None]
  - PAIN OF SKIN [None]
  - DIARRHOEA [None]
  - INFECTED SEBACEOUS CYST [None]
  - DERMAL CYST [None]
  - ARTHRALGIA [None]
  - GAIT DISTURBANCE [None]
  - VOMITING [None]
  - BARRETT'S OESOPHAGUS [None]
